FAERS Safety Report 9474986 (Version 1)
Quarter: 2013Q3

REPORT INFORMATION
  Report Type: Report from Study
  Country: US (occurrence: US)
  Receive Date: 20130824
  Receipt Date: 20130824
  Transmission Date: 20140515
  Serious: Yes (Other)
  Sender: FDA-Public Use
  Company Number: US-ROCHE-1265155

PATIENT
  Age: 57 Year
  Sex: Male
  Weight: 72.64 kg

DRUGS (6)
  1. XOLAIR [Suspect]
     Indication: ASTHMA
     Dosage: 3 SHOTS AT A TIME
     Route: 065
     Dates: start: 20130807
  2. GLUCOSE 5% [Concomitant]
     Indication: DIABETES MELLITUS
     Dosage: AM AND PM - START DATE 15 YEARS AGO
     Route: 048
  3. GLIPIZIDE [Concomitant]
     Indication: DIABETES MELLITUS
     Dosage: AM AND PM - START DATE 5 YEARS AGO
     Route: 048
  4. LIPITOR [Concomitant]
     Indication: BLOOD CHOLESTEROL
     Dosage: START DATE 1 YEAR AGO
     Route: 048
  5. PLAVIX [Concomitant]
     Indication: ANTICOAGULANT THERAPY
     Dosage: START 10 YEARS AGO
     Route: 065
  6. ASPIRIN [Concomitant]
     Indication: ANTICOAGULANT THERAPY
     Dosage: START 5 YEARS AGO
     Route: 065

REACTIONS (3)
  - Cough [Not Recovered/Not Resolved]
  - Drug ineffective [Unknown]
  - Anaphylactic reaction [Unknown]
